FAERS Safety Report 13149221 (Version 2)
Quarter: 2017Q1

REPORT INFORMATION
  Report Type: Spontaneous
  Country: US (occurrence: US)
  Receive Date: 20170125
  Receipt Date: 20170313
  Transmission Date: 20170428
  Serious: Yes (Hospitalization)
  Sender: FDA-Public Use
  Company Number: US-009507513-1701USA009243

PATIENT
  Age: 61 Year
  Sex: Male

DRUGS (1)
  1. KEYTRUDA [Suspect]
     Active Substance: PEMBROLIZUMAB
     Indication: BRAIN NEOPLASM
     Dosage: UNK
     Route: 042
     Dates: start: 20161227, end: 201701

REACTIONS (2)
  - Product use issue [Unknown]
  - Swelling [Unknown]

NARRATIVE: CASE EVENT DATE: 20161227
